FAERS Safety Report 6966933-7 (Version None)
Quarter: 2010Q3

REPORT INFORMATION
  Report Type: 
  Country: None (occurrence: None)
  Receive Date: 20100906
  Receipt Date: 20100715
  Transmission Date: 20110219
  Serious: No
  Sender: FDA-Public Use
  Company Number: US-ALLERGAN-1009221US

PATIENT
  Age: 20 Year
  Sex: Female

DRUGS (1)
  1. ACZONE [Suspect]
     Indication: ACNE
     Dosage: TWICE DAILY FOR 10 DAYS, THEN DECREASED TO ONCE DAILY
     Route: 061
     Dates: start: 20100624, end: 20100711

REACTIONS (3)
  - APPLICATION SITE DISCOLOURATION [None]
  - APPLICATION SITE DRYNESS [None]
  - APPLICATION SITE PAIN [None]
